FAERS Safety Report 19930381 (Version 2)
Quarter: 2021Q4

REPORT INFORMATION
  Report Type: Spontaneous
  Country: CN (occurrence: CN)
  Receive Date: 20211007
  Receipt Date: 20211012
  Transmission Date: 20220303
  Serious: No
  Sender: FDA-Public Use
  Company Number: CN-ASTRAZENECA-2021A750424

PATIENT
  Age: 60 Year
  Sex: Male
  Weight: 73 kg

DRUGS (3)
  1. METOPROLOL [Suspect]
     Active Substance: METOPROLOL
     Dosage: 47.5MG FOR A LONG TIME
     Route: 048
  2. METOPROLOL [Suspect]
     Active Substance: METOPROLOL
     Dosage: USED HALF A TABLET
     Route: 048
  3. METOPROLOL [Suspect]
     Active Substance: METOPROLOL
     Dosage: THE DOSE WAS SLOWLY REDUCED TO 1/4 OF 47.5MG.
     Route: 048

REACTIONS (7)
  - Hypotension [Unknown]
  - Weight decreased [Unknown]
  - Therapeutic product effect delayed [Unknown]
  - Fatigue [Unknown]
  - Discomfort [Unknown]
  - Wrong technique in product usage process [Unknown]
  - Product use in unapproved indication [Unknown]
